FAERS Safety Report 19620365 (Version 1)
Quarter: 2021Q3

REPORT INFORMATION
  Report Type: Spontaneous
  Country: CN (occurrence: CN)
  Receive Date: 20210728
  Receipt Date: 20210728
  Transmission Date: 20211014
  Serious: Yes (Hospitalization)
  Sender: FDA-Public Use
  Company Number: CN-ROCHE-2875980

PATIENT
  Age: 61 Year
  Sex: Female

DRUGS (12)
  1. AVASTIN [Suspect]
     Active Substance: BEVACIZUMAB
     Indication: METASTASES TO BONE
  2. AVASTIN [Suspect]
     Active Substance: BEVACIZUMAB
     Indication: RECTAL CANCER
     Route: 042
     Dates: start: 20210309, end: 20210309
  3. AVASTIN [Suspect]
     Active Substance: BEVACIZUMAB
     Indication: METASTASES TO LYMPH NODES
  4. GABAPENTIN. [Suspect]
     Active Substance: GABAPENTIN
     Indication: METASTASES TO BONE
  5. GABAPENTIN. [Suspect]
     Active Substance: GABAPENTIN
     Indication: METASTASES TO ADRENALS
  6. CELECOXIB. [Suspect]
     Active Substance: CELECOXIB
     Indication: METASTASES TO ADRENALS
  7. AVASTIN [Suspect]
     Active Substance: BEVACIZUMAB
     Indication: METASTASES TO ADRENALS
  8. GABAPENTIN. [Suspect]
     Active Substance: GABAPENTIN
     Indication: METASTASES TO LYMPH NODES
  9. CELECOXIB. [Suspect]
     Active Substance: CELECOXIB
     Indication: RECTAL CANCER
     Route: 048
     Dates: start: 20210309, end: 20210317
  10. CELECOXIB. [Suspect]
     Active Substance: CELECOXIB
     Indication: METASTASES TO LYMPH NODES
  11. GABAPENTIN. [Suspect]
     Active Substance: GABAPENTIN
     Indication: RECTAL CANCER
     Route: 048
     Dates: start: 20210309, end: 20210317
  12. CELECOXIB. [Suspect]
     Active Substance: CELECOXIB
     Indication: METASTASES TO BONE

REACTIONS (5)
  - Asthenia [Unknown]
  - Renal impairment [Unknown]
  - Vomiting [Recovered/Resolved]
  - Decreased appetite [Unknown]
  - Nausea [Recovered/Resolved]

NARRATIVE: CASE EVENT DATE: 20210313
